FAERS Safety Report 5937839-7 (Version None)
Quarter: 2008Q4

REPORT INFORMATION
  Report Type: 
  Country: None (occurrence: None)
  Receive Date: 20081031
  Receipt Date: 20081027
  Transmission Date: 20090506
  Serious: Yes (Other)
  Sender: FDA-Public Use
  Company Number: US-ASTRAZENECA-2008UW24045

PATIENT
  Sex: Female
  Weight: 77.1 kg

DRUGS (5)
  1. ARIMIDEX [Suspect]
     Indication: BREAST CANCER
     Dosage: ARIMIDEX OFF AND ON FOR ABOUT 1 1/2 YEARS
     Route: 048
     Dates: start: 20070401
  2. ASPIRIN [Concomitant]
  3. BENADRYL [Concomitant]
  4. VITAMIN [Concomitant]
  5. POTASSIUM PILL [Concomitant]

REACTIONS (2)
  - FALL [None]
  - WRIST FRACTURE [None]
